FAERS Safety Report 6304934-2 (Version None)
Quarter: 2009Q3

REPORT INFORMATION
  Report Type: 
  Country: None (occurrence: None)
  Receive Date: 20090803
  Receipt Date: 20080310
  Transmission Date: 20100115
  Serious: Yes (Other)
  Sender: FDA-Public Use
  Company Number: 08H-163-0313987-00

PATIENT
  Sex: Female

DRUGS (1)
  1. HEPARIN AND DEXTROSE SOLUTION (HEPARIN SODIUM/ DEXTROSE SOLUTION) (HEP [Suspect]
     Dosage: 80 UNITS/ KG/ HOUR, CONTINUOUS, INTRAVENOUS
     Route: 042
     Dates: start: 20080207

REACTIONS (2)
  - ACTIVATED PARTIAL THROMBOPLASTIN TIME PROLONGED [None]
  - INCORRECT DRUG ADMINISTRATION RATE [None]
